FAERS Safety Report 9311047 (Version 1)
Quarter: 2013Q2

REPORT INFORMATION
  Report Type: Report from Study
  Country: CA (occurrence: CA)
  Receive Date: 20130528
  Receipt Date: 20130528
  Transmission Date: 20140414
  Serious: Yes (Other)
  Sender: FDA-Public Use
  Company Number: CA-JNJFOC-20130515826

PATIENT
  Sex: Male
  Weight: 99.79 kg

DRUGS (3)
  1. REMICADE [Suspect]
     Indication: SYSTEMIC LUPUS ERYTHEMATOSUS
     Route: 042
  2. REMICADE [Suspect]
     Indication: PSORIATIC ARTHROPATHY
     Route: 042
  3. REMICADE [Suspect]
     Indication: PSORIASIS
     Route: 042

REACTIONS (2)
  - Antinuclear antibody increased [Unknown]
  - DNA antibody positive [Unknown]
